FAERS Safety Report 9731088 (Version 1)
Quarter: 2013Q4

REPORT INFORMATION
  Report Type: Report from Study
  Country: NL (occurrence: NL)
  Receive Date: 20131205
  Receipt Date: 20131205
  Transmission Date: 20140711
  Serious: Yes (Death)
  Sender: FDA-Public Use
  Company Number: NL-ROCHE-1311754

PATIENT
  Age: 65 Year
  Sex: 0

DRUGS (6)
  1. CAPECITABINE [Suspect]
     Indication: GASTRIC CANCER
     Dosage: LAST DATE OF ADMINISTRATION 22/NOV/2013
     Route: 048
     Dates: start: 20131028
  2. EPIRUBICIN [Suspect]
     Indication: GASTRIC CANCER
     Dosage: DATE OF LAST DOSE RECEIVED 18/NOV/2013
     Route: 042
     Dates: start: 20131028
  3. OXALIPLATIN [Suspect]
     Indication: GASTRIC CANCER
     Dosage: DATE OF LAST DOSE RECEIVED 18/NOV/2013
     Route: 042
     Dates: start: 20131028
  4. HYDROCHLOROTHIAZIDE [Concomitant]
     Route: 065
     Dates: start: 2013, end: 20131127
  5. EUTHYROX [Concomitant]
     Route: 065
     Dates: end: 20131127
  6. GLUCAGON [Concomitant]
     Dosage: ON GLUCOSE DOSE
     Route: 065
     Dates: end: 20131127

REACTIONS (1)
  - Intestinal ischaemia [Fatal]
